FAERS Safety Report 7982237-8 (Version None)
Quarter: 2011Q4

REPORT INFORMATION
  Report Type: 
  Country: None (occurrence: None)
  Receive Date: 20111215
  Receipt Date: 20111215
  Transmission Date: 20120403
  Serious: Yes (Life-Threatening, Hospitalization, Disabling)
  Sender: FDA-Public Use
  Company Number: None

PATIENT
  Sex: Male
  Weight: 84 kg

DRUGS (2)
  1. COUMADIN [Concomitant]
     Indication: PULMONARY EMBOLISM
     Dosage: 5MG ON12/10,12/11,7.5MGON12/13
     Route: 048
  2. FRAGMIN [Suspect]
     Indication: PULMONARY EMBOLISM
     Dosage: 18,000 UNITS
     Route: 058

REACTIONS (1)
  - ABDOMINAL WALL HAEMATOMA [None]
